FAERS Safety Report 10637725 (Version 1)
Quarter: 2014Q4

REPORT INFORMATION
  Report Type: Spontaneous
  Country: US (occurrence: None)
  Receive Date: 20141121
  Receipt Date: 20141121
  Transmission Date: 20150529
  Serious: No
  Sender: FDA-Public Use
  Company Number: 163-10004-14064245

PATIENT
  Age: 19 Year
  Sex: Female

DRUGS (4)
  1. CLOBEX (CLOBETASOL PROPIONATE) [Concomitant]
  2. DERMA-SMOOTHE/FS BODY (FLUOCINOLONE ACETONIDE) [Concomitant]
  3. OTEZLA [Suspect]
     Active Substance: APREMILAST
     Indication: PSORIATIC ARTHROPATHY
     Dosage: 30 MG, 1 IN 1 D, PO
     Route: 048
     Dates: start: 20140615
  4. IMPLANON (ETONOGESTREL) [Concomitant]

REACTIONS (2)
  - Nausea [None]
  - Headache [None]

NARRATIVE: CASE EVENT DATE: 20140620
